FAERS Safety Report 20084588 (Version 5)
Quarter: 2025Q1

REPORT INFORMATION
  Report Type: Report from Study
  Country: TR (occurrence: TR)
  Receive Date: 20211118
  Receipt Date: 20250109
  Transmission Date: 20250409
  Serious: No
  Sender: ROCHE
  Company Number: TR-ROCHE-2960856

PATIENT
  Age: 55 Year
  Sex: Female
  Weight: 65 kg

DRUGS (6)
  1. OCRELIZUMAB [Suspect]
     Active Substance: OCRELIZUMAB
     Indication: Progressive relapsing multiple sclerosis
     Dosage: ON 27/AUG/2021, SHE RECEIVED MOST RECENT DOSE OF OCRELIZUMAB PRIOR TO AE AND AGAIN SHE RECEIVED ON 0
     Route: 042
     Dates: start: 20191119
  2. GERALGINE-K [Concomitant]
     Indication: Prophylaxis
     Route: 048
     Dates: start: 20180412
  3. METEOSPASMYL [Concomitant]
     Dosage: NO
     Route: 048
     Dates: start: 20211025, end: 20211031
  4. MOTILIUM [Concomitant]
     Active Substance: DOMPERIDONE
     Dosage: NO
     Route: 048
     Dates: start: 20211025, end: 20211031
  5. METOCLOPRAMIDE [Concomitant]
     Active Substance: METOCLOPRAMIDE
     Dosage: NO
     Route: 048
     Dates: start: 20211018, end: 20211024
  6. LANSOPRAZOLE [Concomitant]
     Active Substance: LANSOPRAZOLE
     Dosage: NO
     Route: 048
     Dates: start: 20211018, end: 20211024

REACTIONS (1)
  - COVID-19 [Recovered/Resolved]

NARRATIVE: CASE EVENT DATE: 20211102
